FAERS Safety Report 16307795 (Version 3)
Quarter: 2019Q3

REPORT INFORMATION
  Report Type: Spontaneous
  Country: JP (occurrence: JP)
  Receive Date: 20190514
  Receipt Date: 20190724
  Transmission Date: 20191004
  Serious: Yes (Other)
  Sender: FDA-Public Use
  Company Number: JP-BRISTOL-MYERS SQUIBB COMPANY-BMS-2019-046137

PATIENT
  Sex: Male
  Weight: 57.9 kg

DRUGS (9)
  1. OMEPRAZOLE. [Concomitant]
     Active Substance: OMEPRAZOLE
     Indication: PROPHYLAXIS AGAINST GASTROINTESTINAL ULCER
     Dosage: 20 MILLIGRAM, BID
     Route: 042
     Dates: start: 20181210, end: 20190130
  2. OPDIVO [Suspect]
     Active Substance: NIVOLUMAB
     Indication: METASTATIC RENAL CELL CARCINOMA
     Dosage: 240 MILLIGRAM, Q3WK
     Route: 041
     Dates: start: 20181204, end: 20190207
  3. MORPHINE ATROPINE DAINIPPON [Concomitant]
     Indication: COUGH
     Dosage: 10 MILLIGRAM, QD
     Route: 058
     Dates: start: 20181215, end: 20190120
  4. DEXART [Suspect]
     Active Substance: DEXAMETHASONE SODIUM PHOSPHATE
     Indication: BRAIN OEDEMA
     Dosage: 3.3 MILLIGRAM, QD
     Route: 042
     Dates: start: 20190104, end: 20190130
  5. OPDIVO [Suspect]
     Active Substance: NIVOLUMAB
     Indication: PRODUCT USED FOR UNKNOWN INDICATION
     Dosage: 240 MILLIGRAM, Q2WK
     Route: 041
     Dates: start: 201902
  6. TERPERAN [Concomitant]
     Active Substance: METOCLOPRAMIDE HYDROCHLORIDE
     Indication: NAUSEA
     Dosage: 10 MILLIGRAM, 1 OR 2 TIMES/DAY
     Route: 042
     Dates: start: 20181205, end: 20181231
  7. YERVOY [Suspect]
     Active Substance: IPILIMUMAB
     Indication: METASTATIC RENAL CELL CARCINOMA
     Dosage: 57.3 MILLIGRAM, Q3WK
     Route: 041
     Dates: start: 20181204, end: 20190207
  8. GLYMACKEN [Concomitant]
     Indication: BRAIN OEDEMA
     Dosage: 200 MILLILITER, BID
     Route: 042
     Dates: start: 20190104, end: 20190201
  9. ACELIO [Concomitant]
     Active Substance: ACETAMINOPHEN
     Indication: ANALGESIC THERAPY
     Dosage: 1000 MILLIGRAM, BID
     Route: 042
     Dates: start: 20181208, end: 20190121

REACTIONS (3)
  - Malignant neoplasm progression [Unknown]
  - Prescribed overdose [Unknown]
  - Diarrhoea [Unknown]
